FAERS Safety Report 15505508 (Version 2)
Quarter: 2018Q4

REPORT INFORMATION
  Report Type: Report from Study
  Country: FR (occurrence: FR)
  Receive Date: 20181016
  Receipt Date: 20181205
  Transmission Date: 20190205
  Serious: Yes (Other)
  Sender: FDA-Public Use
  Company Number: FR-CELLTRION INC.-2018FR023167

PATIENT

DRUGS (13)
  1. INFLECTRA [Suspect]
     Active Substance: INFLIXIMAB-DYYB
     Dosage: 750 MG, CYCLIC, EVERY 8 WEEKS
     Route: 042
     Dates: start: 20171219, end: 20171219
  2. INFLECTRA [Suspect]
     Active Substance: INFLIXIMAB-DYYB
     Dosage: 750 MG, CYCLIC, EVERY 8 WEEKS
     Route: 042
     Dates: start: 20180213, end: 20180213
  3. INFLECTRA [Suspect]
     Active Substance: INFLIXIMAB-DYYB
     Dosage: 750 MG, CYCLIC, EVERY 8 WEEKS
     Route: 042
     Dates: start: 20171024, end: 20171024
  4. INFLECTRA [Suspect]
     Active Substance: INFLIXIMAB-DYYB
     Dosage: 750 MG, CYCLIC, EVERY 8 WEEKS
     Route: 042
     Dates: start: 20160920, end: 20160920
  5. INFLECTRA [Suspect]
     Active Substance: INFLIXIMAB-DYYB
     Dosage: 750 MG, CYCLIC, EVERY 8 WEEKS
     Route: 042
     Dates: start: 20170116, end: 20170116
  6. INFLECTRA [Suspect]
     Active Substance: INFLIXIMAB-DYYB
     Dosage: 750 MG, CYCLIC, EVERY 8 WEEKS
     Route: 042
     Dates: start: 20180410, end: 20180410
  7. INFLECTRA [Suspect]
     Active Substance: INFLIXIMAB-DYYB
     Indication: CROHN^S DISEASE
     Dosage: 750 MG, CYCLIC, EVERY 8 WEEKS
     Route: 042
     Dates: start: 20150603, end: 20180410
  8. INFLECTRA [Suspect]
     Active Substance: INFLIXIMAB-DYYB
     Dosage: 750 MG, CYCLIC, EVERY 8 WEEKS
     Route: 042
     Dates: start: 20161121, end: 20161121
  9. INFLECTRA [Suspect]
     Active Substance: INFLIXIMAB-DYYB
     Dosage: 750 MG, CYCLIC, EVERY 8 WEEKS
     Route: 042
     Dates: start: 20170509, end: 20170509
  10. INFLECTRA [Suspect]
     Active Substance: INFLIXIMAB-DYYB
     Dosage: 750 MG, CYCLIC, EVERY 8 WEEKS
     Route: 042
     Dates: start: 20170703, end: 20170703
  11. INFLECTRA [Suspect]
     Active Substance: INFLIXIMAB-DYYB
     Dosage: 750 MG, CYCLIC, EVERY 8 WEEKS
     Route: 042
     Dates: start: 20170313, end: 20170313
  12. INFLECTRA [Suspect]
     Active Substance: INFLIXIMAB-DYYB
     Dosage: 750 MG, CYCLIC, EVERY 8 WEEKS
     Route: 042
     Dates: start: 20170829, end: 20170829
  13. IMUREL                             /00001501/ [Concomitant]
     Active Substance: AZATHIOPRINE SODIUM
     Dosage: UNK
     Dates: start: 201505, end: 20180605

REACTIONS (1)
  - Antiphospholipid antibodies [Not Recovered/Not Resolved]

NARRATIVE: CASE EVENT DATE: 20180213
